FAERS Safety Report 7919250-2 (Version None)
Quarter: 2011Q4

REPORT INFORMATION
  Report Type: 
  Country: None (occurrence: None)
  Receive Date: 20111114
  Receipt Date: 20111104
  Transmission Date: 20120403
  Serious: Yes (Hospitalization)
  Sender: FDA-Public Use
  Company Number: PIR#400120011-CASE 1

PATIENT
  Age: 41 Year
  Sex: Male

DRUGS (1)
  1. METRONIDAZOLE [Suspect]

REACTIONS (9)
  - VENOOCCLUSIVE LIVER DISEASE [None]
  - HEPATIC FIBROSIS [None]
  - RENAL FAILURE ACUTE [None]
  - HEPATIC FAILURE [None]
  - INTERNATIONAL NORMALISED RATIO INCREASED [None]
  - HEPATOMEGALY [None]
  - GENERAL PHYSICAL HEALTH DETERIORATION [None]
  - LIVER TRANSPLANT [None]
  - HEPATIC NECROSIS [None]
